FAERS Safety Report 7574562-X (Version None)
Quarter: 2011Q2

REPORT INFORMATION
  Report Type: 
  Country: None (occurrence: None)
  Receive Date: 20110627
  Receipt Date: 20081116
  Transmission Date: 20111010
  Serious: Yes (Other)
  Sender: FDA-Public Use
  Company Number: US-BAYER-200838751NA

PATIENT
  Age: 77 Year
  Sex: Male
  Weight: 72.562 kg

DRUGS (20)
  1. TRASYLOL [Suspect]
     Indication: PRODUCT USED FOR UNKNOWN INDICATION
     Dosage: 200 ML
     Route: 042
     Dates: start: 20060124, end: 20060124
  2. NITROGLYCERIN [Concomitant]
     Indication: NITRATE COMPOUND THERAPY
     Dosage: 0.4MG AS NEEDED
     Route: 060
  3. MANNITOL [Concomitant]
     Indication: PRODUCT USED FOR UNKNOWN INDICATION
     Dosage: 250 ML, CORONARY SINUS CATHETER
     Dates: start: 20060124, end: 20060124
  4. TENORMIN [Concomitant]
     Dosage: 25 MG, QD
     Route: 048
     Dates: start: 20000323
  5. ANTIBIOTICS [Concomitant]
     Indication: PRODUCT USED FOR UNKNOWN INDICATION
     Dosage: 250 ML, UNK
     Route: 061
     Dates: start: 20060124, end: 20060124
  6. CEFTRIAXONE [Concomitant]
     Indication: PRODUCT USED FOR UNKNOWN INDICATION
     Dosage: 1 G, UNK
     Route: 042
     Dates: start: 20060124
  7. ZOCOR [Concomitant]
     Indication: HYPERLIPIDAEMIA
     Dosage: 80 MG, QD
     Route: 048
  8. ACETYLSALICYLIC ACID SRT [Concomitant]
     Indication: ANTICOAGULANT THERAPY
     Route: 048
  9. ISOSORBIDE [Concomitant]
     Indication: VASODILATION PROCEDURE
     Dosage: 30 MG, QD
     Route: 048
  10. CARDIOPLEGIA [Concomitant]
     Indication: PRODUCT USED FOR UNKNOWN INDICATION
     Dosage: 25 MINUTE INTERVALS DURING SURGERY THROUGH CORONARY SINUS CATHETER
     Dates: start: 20060124, end: 20060124
  11. LIDOCAINE [Concomitant]
     Indication: PRODUCT USED FOR UNKNOWN INDICATION
     Dosage: 150 MG, UNK
     Dates: start: 20060124, end: 20060124
  12. HEPARIN [Concomitant]
     Indication: PRODUCT USED FOR UNKNOWN INDICATION
     Dosage: 10 ML, CORONARY SINUS CATHETER
     Dates: start: 20060124, end: 20060124
  13. GLUCOSE [Concomitant]
     Indication: PRODUCT USED FOR UNKNOWN INDICATION
     Dosage: 135 ML, UNK
     Route: 042
     Dates: start: 20060124, end: 20060124
  14. PROTAMINE SULFATE [Concomitant]
     Indication: PRODUCT USED FOR UNKNOWN INDICATION
     Dosage: 320 MG, UNK
     Route: 042
     Dates: start: 20060124, end: 20060124
  15. FORANE [Concomitant]
     Indication: PRODUCT USED FOR UNKNOWN INDICATION
     Dosage: UNK
     Dates: start: 20060124, end: 20060124
  16. NEOSYNEPHRINE [Concomitant]
     Indication: PRODUCT USED FOR UNKNOWN INDICATION
     Dosage: 40 ML, UNK
     Route: 042
     Dates: start: 20060124, end: 20060124
  17. POTASSIUM CHLORIDE [Concomitant]
     Indication: PRODUCT USED FOR UNKNOWN INDICATION
     Dosage: 46
     Route: 042
     Dates: start: 20060124, end: 20060124
  18. ZANTAC [Concomitant]
     Indication: GASTROOESOPHAGEAL REFLUX DISEASE
     Dosage: 150 MG, BID
     Route: 048
  19. PAPAVERINE [Concomitant]
     Indication: PRODUCT USED FOR UNKNOWN INDICATION
     Dosage: UNK
     Route: 061
     Dates: start: 20060124, end: 20060124
  20. MAGNESIUM SULFATE [Concomitant]
     Indication: PRODUCT USED FOR UNKNOWN INDICATION
     Dosage: 2 MG, UNK
     Route: 042
     Dates: start: 20060124, end: 20060124

REACTIONS (10)
  - STRESS [None]
  - RENAL FAILURE [None]
  - EMOTIONAL DISTRESS [None]
  - ANXIETY [None]
  - INJURY [None]
  - ANHEDONIA [None]
  - RENAL FAILURE ACUTE [None]
  - UNEVALUABLE EVENT [None]
  - PAIN [None]
  - FEAR [None]
